FAERS Safety Report 5632954-X (Version None)
Quarter: 2008Q1

REPORT INFORMATION
  Report Type: 
  Country: None (occurrence: None)
  Receive Date: 20080214
  Receipt Date: 20080131
  Transmission Date: 20080703
  Serious: Yes (Other)
  Sender: FDA-Public Use
  Company Number: MPS1-1000010

PATIENT
  Age: 6 Year
  Sex: Female
  Weight: 14.5 kg

DRUGS (3)
  1. ALDURAZYME (LARONIDASE) CONCENTRATE FOR SOLUTION INFUSION [Suspect]
     Indication: MUCOPOLYSACCHARIDOSIS I
     Dosage: 0.58 MG/KG, QW,INTRAVENOUS
     Route: 042
     Dates: start: 20070731
  2. ENAPRIL (ENALAPRIL) [Concomitant]
  3. FUROSEMIDE [Concomitant]

REACTIONS (8)
  - ANAPHYLACTIC REACTION [None]
  - HEART RATE INCREASED [None]
  - HYPERTENSION [None]
  - INFUSION RELATED REACTION [None]
  - IRRITABILITY [None]
  - OXYGEN SATURATION DECREASED [None]
  - RESPIRATORY RATE INCREASED [None]
  - TRANSAMINASES INCREASED [None]
